FAERS Safety Report 7503322-0 (Version None)
Quarter: 2011Q2

REPORT INFORMATION
  Report Type: 
  Country: None (occurrence: None)
  Receive Date: 20110525
  Receipt Date: 20110512
  Transmission Date: 20111010
  Serious: Yes (Other)
  Sender: FDA-Public Use
  Company Number: PHHY2011FR41520

PATIENT
  Sex: Female

DRUGS (3)
  1. CRESTOR [Suspect]
     Indication: HYPERCHOLESTEROLAEMIA
  2. FEMARA [Suspect]
     Indication: BREAST CANCER STAGE II
     Dosage: 1 UNK, QD
  3. CACIT                                   /FRA/ [Concomitant]

REACTIONS (5)
  - HAIRY CELL LEUKAEMIA [None]
  - CYTOLYTIC HEPATITIS [None]
  - WHITE BLOOD CELL DISORDER [None]
  - PLATELET DISORDER [None]
  - ASTHENIA [None]
